FAERS Safety Report 12854391 (Version 1)
Quarter: 2016Q4

REPORT INFORMATION
  Report Type: Spontaneous
  Country: US (occurrence: US)
  Receive Date: 20161017
  Receipt Date: 20161017
  Transmission Date: 20170207
  Serious: No
  Sender: FDA-Public Use
  Company Number: US-GALDERMA-US16005506

PATIENT
  Age: 78 Year
  Sex: Female

DRUGS (6)
  1. MYLAN [Concomitant]
     Active Substance: FENTANYL
     Indication: INTERNAL HAEMORRHAGE
     Dosage: 40 MG
     Route: 048
  2. SOOLANTRA [Suspect]
     Active Substance: IVERMECTIN
     Indication: ROSACEA
     Dosage: 1%
     Route: 061
     Dates: start: 201602, end: 201607
  3. SOOLANTRA [Suspect]
     Active Substance: IVERMECTIN
     Indication: ACNE
  4. ABAGI [Concomitant]
     Indication: THERAPEUTIC SKIN CARE TOPICAL
     Dosage: 2%
     Route: 061
  5. PANTOPRAZOLE [Concomitant]
     Active Substance: PANTOPRAZOLE SODIUM
     Dosage: 40 MG
     Dates: start: 201408
  6. UNSPECIFIED SOAP [Concomitant]
     Indication: THERAPEUTIC SKIN CARE TOPICAL
     Route: 061

REACTIONS (2)
  - Pruritus [Recovered/Resolved]
  - Skin burning sensation [Recovered/Resolved]

NARRATIVE: CASE EVENT DATE: 201602
